FAERS Safety Report 25492836 (Version 1)
Quarter: 2025Q2

REPORT INFORMATION
  Report Type: Spontaneous
  Country: US (occurrence: US)
  Receive Date: 20250630
  Receipt Date: 20250630
  Transmission Date: 20250716
  Serious: No
  Sender: CHATTEM
  Company Number: US-OPELLA-2025OHG019903

PATIENT
  Sex: Female

DRUGS (1)
  1. NASACORT ALLERGY 24HR [Suspect]
     Active Substance: TRIAMCINOLONE ACETONIDE
     Indication: Product used for unknown indication
     Route: 065
     Dates: start: 202410

REACTIONS (4)
  - Dry eye [Recovering/Resolving]
  - Dark circles under eyes [Recovering/Resolving]
  - Anxiety [Unknown]
  - Vision blurred [Recovering/Resolving]
